FAERS Safety Report 22310077 (Version 1)
Quarter: 2023Q2

REPORT INFORMATION
  Report Type: Spontaneous
  Country: US (occurrence: None)
  Receive Date: 20230510
  Receipt Date: 20230510
  Transmission Date: 20230722
  Serious: Yes (Hospitalization)
  Sender: FDA-Public Use
  Company Number: None

PATIENT
  Age: 50 Year
  Sex: Male
  Weight: 117 kg

DRUGS (1)
  1. WEGOVY [Suspect]
     Active Substance: SEMAGLUTIDE
     Dates: start: 20230505, end: 20230505

REACTIONS (8)
  - Nausea [None]
  - Vomiting [None]
  - Dyspepsia [None]
  - Abdominal discomfort [None]
  - Headache [None]
  - Pain [None]
  - Dizziness [None]
  - Confusional state [None]

NARRATIVE: CASE EVENT DATE: 20230505
